FAERS Safety Report 13752874 (Version 1)
Quarter: 2017Q3

REPORT INFORMATION
  Report Type: Spontaneous
  Country: US (occurrence: US)
  Receive Date: 20170713
  Receipt Date: 20170713
  Transmission Date: 20171127
  Serious: Yes (Disabling)
  Sender: FDA-Public Use
  Company Number: None

PATIENT
  Age: 20 Year
  Sex: Male
  Weight: 50 kg

DRUGS (1)
  1. PENDURE LA 12 [Suspect]
     Active Substance: PENICILLIN G BENZATHINE
     Indication: RHEUMATIC FEVER
     Dates: start: 20170713

REACTIONS (5)
  - Flatulence [None]
  - Abdominal pain upper [None]
  - Heart rate increased [None]
  - Cough [None]
  - Malaise [None]

NARRATIVE: CASE EVENT DATE: 20170713
